FAERS Safety Report 6923849-X (Version None)
Quarter: 2010Q3

REPORT INFORMATION
  Report Type: 
  Country: None (occurrence: None)
  Receive Date: 20100813
  Receipt Date: 20091021
  Transmission Date: 20110219
  Serious: No
  Sender: FDA-Public Use
  Company Number: US-BRISTOL-MYERS SQUIBB COMPANY-14813208

PATIENT
  Age: 42 Year
  Sex: Male

DRUGS (1)
  1. REYATAZ [Suspect]
     Indication: HIV TEST POSITIVE
     Route: 048
     Dates: start: 20040120, end: 20091012

REACTIONS (1)
  - NEPHROLITHIASIS [None]
